FAERS Safety Report 7437842-4 (Version None)
Quarter: 2011Q2

REPORT INFORMATION
  Report Type: 
  Country: None (occurrence: None)
  Receive Date: 20110426
  Receipt Date: 20101119
  Transmission Date: 20111010
  Serious: Yes (Other)
  Sender: FDA-Public Use
  Company Number: A0897056A

PATIENT
  Age: 58 Year
  Sex: Female

DRUGS (1)
  1. AVANDAMET [Suspect]
     Route: 048
     Dates: start: 20050105, end: 20070408

REACTIONS (3)
  - CHEST PAIN [None]
  - HYPERTENSIVE HEART DISEASE [None]
  - HYPERLIPIDAEMIA [None]
